FAERS Safety Report 15950731 (Version 1)
Quarter: 2019Q1

REPORT INFORMATION
  Report Type: Spontaneous
  Country: US (occurrence: US)
  Receive Date: 20190212
  Receipt Date: 20190212
  Transmission Date: 20190417
  Serious: Yes (Death)
  Sender: FDA-Public Use
  Company Number: US-ASTRAZENECA-2019SE23520

PATIENT
  Sex: Female

DRUGS (1)
  1. ZOMIG [Suspect]
     Active Substance: ZOLMITRIPTAN
     Dosage: TAKE ONE TABLET BY MOUTH AT ONSET, MAY REPEAT ONE TABLET IN TWO HOURS/MAX 2 EVERY DAY
     Route: 048

REACTIONS (1)
  - Death [Fatal]
